FAERS Safety Report 4912946-6 (Version None)
Quarter: 2006Q1

REPORT INFORMATION
  Report Type: 
  Country: None (occurrence: None)
  Receive Date: 20060215
  Receipt Date: 20050928
  Transmission Date: 20060701
  Serious: Yes (Other)
  Sender: FDA-Public Use
  Company Number: FR-AVENTIS-200513337FR

PATIENT
  Age: 37 Year
  Sex: Female

DRUGS (8)
  1. LANTUS [Suspect]
     Indication: DIABETES MELLITUS INSULIN-DEPENDENT
     Route: 058
     Dates: start: 20050411, end: 20050426
  2. NOVORAPID [Concomitant]
     Indication: DIABETES MELLITUS INSULIN-DEPENDENT
     Dosage: DOSE: 8 IU THEN 30 IU
     Route: 058
     Dates: end: 20050426
  3. INSULATARD NPH HUMAN [Concomitant]
     Indication: DIABETES MELLITUS INSULIN-DEPENDENT
     Route: 058
     Dates: end: 20050411
  4. TARDYFERON [Concomitant]
  5. GAVISCON [Concomitant]
     Indication: GASTROOESOPHAGEAL REFLUX DISEASE
     Dates: end: 20051101
  6. AZANTAC [Concomitant]
     Indication: GASTROOESOPHAGEAL REFLUX DISEASE
     Dates: end: 20051001
  7. HUMALOG [Concomitant]
     Route: 058
     Dates: start: 20050426
  8. CORTICOSTEROIDS [Concomitant]
     Dates: start: 20051020, end: 20051021

REACTIONS (5)
  - DRUG EXPOSURE DURING PREGNANCY [None]
  - HYPOGLYCAEMIA [None]
  - PRE-ECLAMPSIA [None]
  - PREMATURE LABOUR [None]
  - RETINOPATHY [None]
